FAERS Safety Report 16708235 (Version 1)
Quarter: 2019Q3

REPORT INFORMATION
  Report Type: Report from Study
  Country: None (occurrence: US)
  Receive Date: 20190816
  Receipt Date: 20190816
  Transmission Date: 20191004
  Serious: Yes (Other)
  Sender: FDA-Public Use
  Company Number: US-ABBVIE-19K-163-2885546-00

PATIENT
  Sex: Female

DRUGS (1)
  1. SYNTHROID [Suspect]
     Active Substance: LEVOTHYROXINE SODIUM
     Indication: PRODUCT USED FOR UNKNOWN INDICATION
     Route: 048

REACTIONS (8)
  - Arthralgia [Unknown]
  - Alopecia [Unknown]
  - Depression [Unknown]
  - Myalgia [Unknown]
  - Gastric bypass [Unknown]
  - Weight abnormal [Unknown]
  - Muscular weakness [Unknown]
  - Fatigue [Unknown]
